FAERS Safety Report 21168333 (Version 2)
Quarter: 2023Q1

REPORT INFORMATION
  Report Type: Spontaneous
  Country: FR (occurrence: FR)
  Receive Date: 20220803
  Receipt Date: 20230320
  Transmission Date: 20230418
  Serious: Yes (Other)
  Sender: FDA-Public Use
  Company Number: None

PATIENT
  Age: 75 Year
  Sex: Male
  Weight: 73 kg

DRUGS (3)
  1. FASTURTEC [Suspect]
     Active Substance: RASBURICASE
     Indication: Chronic lymphocytic leukaemia
     Dosage: 7.5 MG, QW
     Route: 042
     Dates: start: 20220510
  2. VENETOCLAX [Suspect]
     Active Substance: VENETOCLAX
     Indication: Chronic lymphocytic leukaemia
     Dosage: 50 MG, QD
     Route: 048
     Dates: start: 20220507
  3. COMIRNATY [Suspect]
     Active Substance: TOZINAMERAN
     Indication: COVID-19 immunisation
     Dosage: 1 DF
     Route: 058
     Dates: start: 20220510

REACTIONS (2)
  - Polymyalgia rheumatica [Recovering/Resolving]
  - Neuralgic amyotrophy [Recovering/Resolving]

NARRATIVE: CASE EVENT DATE: 20220516
